FAERS Safety Report 20171151 (Version 1)
Quarter: 2021Q4

REPORT INFORMATION
  Report Type: Spontaneous
  Country: US (occurrence: None)
  Receive Date: 20211209
  Receipt Date: 20211209
  Transmission Date: 20220303
  Serious: Yes (Hospitalization)
  Sender: FDA-Public Use
  Company Number: None

PATIENT
  Age: 47 Year
  Sex: Female
  Weight: 86.7 kg

DRUGS (2)
  1. REGEN-COV [Suspect]
     Active Substance: CASIRIVIMAB\IMDEVIMAB
     Indication: COVID-19
  2. CASIVIRIMAB + IMDEVIMAB [Concomitant]
     Dates: start: 20211126, end: 20211126

REACTIONS (3)
  - Pneumonia [None]
  - Sepsis [None]
  - Pain in extremity [None]

NARRATIVE: CASE EVENT DATE: 20211130
